FAERS Safety Report 5301049-7 (Version None)
Quarter: 2007Q2

REPORT INFORMATION
  Report Type: 
  Country: None (occurrence: None)
  Receive Date: 20070411
  Receipt Date: 20070330
  Transmission Date: 20071010
  Serious: Yes (Death, Other)
  Sender: FDA-Public Use
  Company Number: 2007SP006251

PATIENT
  Age: 45 Year
  Sex: Female

DRUGS (6)
  1. TEMODAL [Suspect]
     Indication: GLIOBLASTOMA
     Dosage: PO
     Route: 048
  2. DEXAMETHASONE 0.5MG TAB [Concomitant]
  3. NEUPOGEN [Concomitant]
  4. PLATELETS CONCENTRATES [Concomitant]
  5. AUGMENTIN '125' [Concomitant]
  6. FLUCONAZOLE [Concomitant]

REACTIONS (11)
  - ASPERGILLOSIS [None]
  - CEREBRAL FUNGAL INFECTION [None]
  - CSF TEST ABNORMAL [None]
  - HAEMORRHAGE [None]
  - HAEMORRHAGIC DIATHESIS [None]
  - LEUKOPENIA [None]
  - LYMPHADENOPATHY MEDIASTINAL [None]
  - MUCOUS MEMBRANE DISORDER [None]
  - RESPIRATORY FAILURE [None]
  - SKIN HAEMORRHAGE [None]
  - THROMBOCYTOPENIA [None]
